FAERS Safety Report 7914769-2 (Version None)
Quarter: 2011Q4

REPORT INFORMATION
  Report Type: 
  Country: None (occurrence: None)
  Receive Date: 20111115
  Receipt Date: 20111110
  Transmission Date: 20120403
  Serious: Yes (Death)
  Sender: FDA-Public Use
  Company Number: PHHY2011HU097471

PATIENT
  Sex: Female

DRUGS (2)
  1. VASODILATORS USED IN CARDIAC DISEASES [Concomitant]
     Indication: ARTERIOSCLEROSIS
     Route: 065
  2. LETROZOLE [Suspect]
     Dosage: 2.5 MG, DAILY
     Route: 065
     Dates: start: 20080206

REACTIONS (1)
  - CARDIAC FAILURE [None]
